FAERS Safety Report 10221606 (Version 1)
Quarter: 2014Q2

REPORT INFORMATION
  Report Type: Spontaneous
  Country: US (occurrence: US)
  Receive Date: 20140606
  Receipt Date: 20140606
  Transmission Date: 20141212
  Serious: Yes (Other)
  Sender: FDA-Public Use
  Company Number: US-JNJFOC-20140514945

PATIENT
  Sex: Male

DRUGS (4)
  1. ZYTIGA [Suspect]
     Indication: PROSTATE CANCER METASTATIC
     Route: 048
  2. PREDNISONE [Suspect]
     Indication: PROSTATE CANCER METASTATIC
     Route: 065
  3. GONADORELIN [Suspect]
     Indication: PROSTATE CANCER METASTATIC
     Route: 065
  4. PLACEBO [Suspect]
     Indication: PROSTATE CANCER METASTATIC
     Route: 065

REACTIONS (14)
  - Electrocardiogram QT prolonged [Unknown]
  - Fracture [Unknown]
  - Hypertension [Unknown]
  - Angina pectoris [Unknown]
  - Cardiac failure [Unknown]
  - Arrhythmia [Unknown]
  - Liver disorder [Unknown]
  - Transaminases increased [Unknown]
  - Pollakiuria [Unknown]
  - Nocturia [Unknown]
  - Haematuria [Unknown]
  - Oedema [Unknown]
  - Hypokalaemia [Unknown]
  - Fluid retention [Unknown]
